FAERS Safety Report 11608729 (Version 21)
Quarter: 2019Q4

REPORT INFORMATION
  Report Type: Spontaneous
  Country: US (occurrence: US)
  Receive Date: 20151007
  Receipt Date: 20191230
  Transmission Date: 20200122
  Serious: Yes (Hospitalization, Other)
  Sender: FDA-Public Use
  Company Number: US-ACTELION PHARMACEUTICALS US, INC.-A-US2015-122587

PATIENT
  Age: 70 Year
  Sex: Female
  Weight: 77.1 kg

DRUGS (14)
  1. OPSUMIT [Suspect]
     Active Substance: MACITENTAN
     Dosage: 10 MG, QD
     Route: 048
  2. SILDENAFIL. [Concomitant]
     Active Substance: SILDENAFIL
  3. NITROGLYCERIN. [Concomitant]
     Active Substance: NITROGLYCERIN
     Dosage: UNK, PRN
  4. OPSUMIT [Suspect]
     Active Substance: MACITENTAN
     Indication: PULMONARY HYPERTENSION
     Dosage: 10 MG, QD
     Route: 048
  5. PREDNISONE. [Suspect]
     Active Substance: PREDNISONE
     Indication: PNEUMONIA
     Route: 065
  6. ADCIRCA [Concomitant]
     Active Substance: TADALAFIL
  7. GABAPENTIN. [Concomitant]
     Active Substance: GABAPENTIN
     Dosage: 100 MG
  8. LEVOTHYROXINE. [Concomitant]
     Active Substance: LEVOTHYROXINE
     Dosage: 88 MCG
  9. OPSUMIT [Suspect]
     Active Substance: MACITENTAN
     Dosage: 10 MG, QD
     Route: 048
     Dates: start: 20150428
  10. BRINZOLAMIDE [Suspect]
     Active Substance: BRINZOLAMIDE
     Indication: PRODUCT USED FOR UNKNOWN INDICATION
     Route: 047
  11. LASIX [Concomitant]
     Active Substance: FUROSEMIDE
     Dosage: 1 TAB DAILY
  12. GABAPENTIN. [Concomitant]
     Active Substance: GABAPENTIN
     Dosage: 300 MG
  13. LEVOTHYROXINE. [Concomitant]
     Active Substance: LEVOTHYROXINE
     Dosage: 50 MCG
  14. AMLODIPINE [Concomitant]
     Active Substance: AMLODIPINE BESYLATE

REACTIONS (40)
  - Pain in extremity [Unknown]
  - Swelling [Unknown]
  - Somnolence [Unknown]
  - Hypotension [Unknown]
  - Fatigue [Unknown]
  - Pneumonia [Unknown]
  - Nasal congestion [Unknown]
  - Hypertonic bladder [Unknown]
  - Cardiac disorder [Unknown]
  - Constipation [Unknown]
  - Condition aggravated [Unknown]
  - Palpitations [Unknown]
  - Cardiac failure [Unknown]
  - Lower respiratory tract infection [Unknown]
  - Upper respiratory tract congestion [Unknown]
  - Back pain [Unknown]
  - Faeces discoloured [Unknown]
  - Nasal dryness [Unknown]
  - Eye disorder [Unknown]
  - Hypersensitivity [Unknown]
  - Lung disorder [Unknown]
  - Dyspnoea [Unknown]
  - Sinus congestion [Unknown]
  - Upper respiratory tract infection [Unknown]
  - Neck pain [Unknown]
  - Hypertension [Unknown]
  - Melaena [Unknown]
  - Therapeutic product effect decreased [Unknown]
  - Musculoskeletal pain [Unknown]
  - Dry mouth [Unknown]
  - Chest pain [Unknown]
  - Cardiac failure congestive [Unknown]
  - Pulmonary arterial hypertension [Unknown]
  - Cellulitis pharyngeal [Unknown]
  - Multiple allergies [Unknown]
  - Tachycardia [Unknown]
  - Chest discomfort [Unknown]
  - Sinusitis [Unknown]
  - Gastrooesophageal reflux disease [Unknown]
  - Dehydration [Unknown]

NARRATIVE: CASE EVENT DATE: 20150801
